FAERS Safety Report 7623541-2 (Version None)
Quarter: 2011Q3

REPORT INFORMATION
  Report Type: 
  Country: None (occurrence: None)
  Receive Date: 20110720
  Receipt Date: 20110707
  Transmission Date: 20111222
  Serious: Yes (Other)
  Sender: FDA-Public Use
  Company Number: US-ELI_LILLY_AND_COMPANY-US201107002699

PATIENT
  Age: 29 Year
  Sex: Female

DRUGS (6)
  1. XANAX                                   /USA/ [Concomitant]
     Dosage: UNK
  2. CYMBALTA [Suspect]
     Dosage: UNK
  3. FENTANYL-100 [Concomitant]
     Dosage: UNK
  4. NORCO [Concomitant]
     Dosage: UNK
  5. MINIPRESS [Concomitant]
     Dosage: UNK
  6. PROGESTERONE [Concomitant]
     Dosage: UNK

REACTIONS (2)
  - THROMBOSIS [None]
  - FATIGUE [None]
